FAERS Safety Report 5530618-4 (Version None)
Quarter: 2007Q4

REPORT INFORMATION
  Report Type: 
  Country: None (occurrence: None)
  Receive Date: 20071130
  Receipt Date: 20071127
  Transmission Date: 20080405
  Serious: Yes (Other)
  Sender: FDA-Public Use
  Company Number: A0696037A

PATIENT
  Age: 68 Year
  Sex: Female

DRUGS (3)
  1. IMITREX [Suspect]
     Indication: MIGRAINE
     Dosage: 50MG VARIABLE DOSE
     Route: 048
  2. SUPPLEMENT [Concomitant]
  3. OXYGEN [Concomitant]

REACTIONS (10)
  - ASTHMA [None]
  - ATRIAL FIBRILLATION [None]
  - CHRONIC OBSTRUCTIVE PULMONARY DISEASE [None]
  - DIZZINESS POSTURAL [None]
  - EMOTIONAL DISORDER [None]
  - EXPOSURE TO TOXIC AGENT [None]
  - FATIGUE [None]
  - LOSS OF CONSCIOUSNESS [None]
  - NERVOUSNESS [None]
  - TACHYCARDIA [None]
